FAERS Safety Report 6219603-7 (Version None)
Quarter: 2009Q2

REPORT INFORMATION
  Report Type: 
  Country: None (occurrence: None)
  Receive Date: 20090609
  Receipt Date: 20090528
  Transmission Date: 20091009
  Serious: Yes (Other)
  Sender: FDA-Public Use
  Company Number: US-PFIZER INC-2009170043

PATIENT
  Sex: Male
  Weight: 80 kg

DRUGS (12)
  1. TIKOSYN [Suspect]
     Indication: ATRIAL FIBRILLATION
     Dosage: 500 MG, 2X/DAY
     Dates: start: 20040201
  2. TIKOSYN [Suspect]
     Indication: ATRIAL FLUTTER
  3. WARFARIN [Concomitant]
     Dosage: UNK
  4. ACETYLSALICYLIC ACID [Concomitant]
     Dosage: UNK
  5. LEXAPRO [Concomitant]
     Dosage: UNK
  6. AVODART [Concomitant]
     Dosage: UNK
  7. ARICEPT [Concomitant]
     Dosage: UNK
  8. ZOCOR [Concomitant]
     Dosage: UNK
  9. MULTI-VITAMINS [Concomitant]
     Dosage: UNK
  10. SIMVASTATIN [Concomitant]
  11. VITAMIN E [Concomitant]
     Dosage: UNK
  12. ASCORBIC ACID [Concomitant]
     Dosage: UNK

REACTIONS (9)
  - ATRIAL FIBRILLATION [None]
  - DEMENTIA WITH LEWY BODIES [None]
  - DRUG DOSE OMISSION [None]
  - DRUG TOXICITY [None]
  - FALL [None]
  - FATIGUE [None]
  - GAIT DISTURBANCE [None]
  - NEUROPATHY PERIPHERAL [None]
  - WEIGHT DECREASED [None]
